FAERS Safety Report 5915659-7 (Version None)
Quarter: 2008Q4

REPORT INFORMATION
  Report Type: 
  Country: None (occurrence: None)
  Receive Date: 20081010
  Receipt Date: 20080929
  Transmission Date: 20090506
  Serious: Yes (Hospitalization)
  Sender: FDA-Public Use
  Company Number: BR-JNJCH-2008023737

PATIENT
  Age: 21 Month
  Sex: Male

DRUGS (2)
  1. CETIRIZINE HYDROCHLORIDE [Suspect]
     Indication: VIRAL INFECTION
     Dosage: TEXT:3 ML
     Route: 048
     Dates: start: 20080820, end: 20080820
  2. FLUTICASONE PROPIONATE [Suspect]
     Indication: COUGH
     Dosage: TEXT:UNKNOWN
     Route: 065
     Dates: start: 20080701, end: 20080101

REACTIONS (4)
  - COUGH [None]
  - OCULOGYRIC CRISIS [None]
  - PYREXIA [None]
  - RHINORRHOEA [None]
